FAERS Safety Report 16658880 (Version 3)
Quarter: 2019Q3

REPORT INFORMATION
  Report Type: Spontaneous
  Country: JP (occurrence: JP)
  Receive Date: 20190801
  Receipt Date: 20190919
  Transmission Date: 20191004
  Serious: Yes (Death, Hospitalization)
  Sender: FDA-Public Use
  Company Number: PHJP2019JP010018

PATIENT
  Sex: Male

DRUGS (2)
  1. REVOLADE TAB [Suspect]
     Active Substance: ELTROMBOPAG
     Indication: APLASTIC ANAEMIA
     Dosage: 100 MG, UNK
     Route: 048
     Dates: start: 201903, end: 201906
  2. CICLOSPORIN [Concomitant]
     Active Substance: CYCLOSPORINE
     Indication: PRODUCT USED FOR UNKNOWN INDICATION
     Dosage: 175 MG, UNK
     Route: 048
     Dates: end: 201906

REACTIONS (4)
  - Infection [Fatal]
  - Aplastic anaemia [Fatal]
  - Arthropod-borne disease [Unknown]
  - Disease progression [Fatal]

NARRATIVE: CASE EVENT DATE: 201906
